FAERS Safety Report 17729786 (Version 1)
Quarter: 2020Q2

REPORT INFORMATION
  Report Type: Spontaneous
  Country: US (occurrence: US)
  Receive Date: 20200430
  Receipt Date: 20200430
  Transmission Date: 20200714
  Serious: Yes (Hospitalization, Other)
  Sender: FDA-Public Use
  Company Number: US-PFIZER INC-2020171106

PATIENT
  Age: 64 Year
  Sex: Female
  Weight: 86.18 kg

DRUGS (2)
  1. ZARONTIN [Suspect]
     Active Substance: ETHOSUXIMIDE
     Indication: SEIZURE
     Dosage: ONE CAPSULE 5 TIMES A DAY
  2. ZARONTIN [Suspect]
     Active Substance: ETHOSUXIMIDE
     Dosage: 250 MG, 2X/DAY
     Route: 048

REACTIONS (6)
  - Cerebrovascular accident [Unknown]
  - Vocal cord disorder [Unknown]
  - Intentional product misuse [Unknown]
  - Dyspnoea [Unknown]
  - Stridor [Unknown]
  - Type 2 diabetes mellitus [Unknown]

NARRATIVE: CASE EVENT DATE: 202002
